FAERS Safety Report 5682251-1 (Version None)
Quarter: 2008Q1

REPORT INFORMATION
  Report Type: 
  Country: None (occurrence: None)
  Receive Date: 20080326
  Receipt Date: 20080326
  Transmission Date: 20080703
  Serious: No
  Sender: FDA-Public Use
  Company Number: None

PATIENT

DRUGS (1)
  1. COAL TAR 10% CREAM COAL TAR 2% OINTMENT SWISS-AMERICAN PRODUCTS, INC. [Suspect]

REACTIONS (1)
  - MEDICATION ERROR [None]
